FAERS Safety Report 25529525 (Version 1)
Quarter: 2025Q3

REPORT INFORMATION
  Report Type: Spontaneous
  Country: US (occurrence: None)
  Receive Date: 20250707
  Receipt Date: 20250707
  Transmission Date: 20251020
  Serious: Yes (Other)
  Sender: FDA-CTU
  Company Number: None

PATIENT
  Age: 31 Year
  Sex: Male
  Weight: 67.5 kg

DRUGS (1)
  1. HERBALS [Suspect]
     Active Substance: HERBALS
     Indication: Anxiety
     Dates: start: 20230101, end: 20250501

REACTIONS (10)
  - Substance use [None]
  - Drug dependence [None]
  - Somatic symptom disorder [None]
  - Withdrawal syndrome [None]
  - Anxiety [None]
  - Depression [None]
  - Fatigue [None]
  - Insomnia [None]
  - Suicidal ideation [None]
  - Product communication issue [None]

NARRATIVE: CASE EVENT DATE: 20250501
